FAERS Safety Report 6909675-6 (Version None)
Quarter: 2010Q3

REPORT INFORMATION
  Report Type: 
  Country: None (occurrence: None)
  Receive Date: 20100805
  Receipt Date: 20100726
  Transmission Date: 20110219
  Serious: Yes (Other)
  Sender: FDA-Public Use
  Company Number: ES-ABBOTT-10P-144-0653379-00

PATIENT
  Age: 73 Year
  Sex: Female

DRUGS (7)
  1. HUMIRA [Suspect]
     Indication: RHEUMATOID ARTHRITIS
     Dates: start: 20050331
  2. FUROSEMIDE [Concomitant]
     Indication: MITRAL VALVE INCOMPETENCE
  3. SINTROM [Concomitant]
     Indication: ATRIAL FIBRILLATION
  4. MOTIVAN [Concomitant]
     Indication: DEPRESSION
  5. PREOCTACT [Concomitant]
     Indication: OSTEOPOROSIS
  6. IDEOS [Concomitant]
     Indication: OSTEOPOROSIS
  7. HIDROFEROL [Concomitant]
     Indication: OSTEOPOROSIS

REACTIONS (2)
  - DEVICE DISLOCATION [None]
  - MEDICAL DEVICE PAIN [None]
